FAERS Safety Report 14769150 (Version 2)
Quarter: 2018Q2

REPORT INFORMATION
  Report Type: Report from Study
  Country: None (occurrence: CA)
  Receive Date: 20180417
  Receipt Date: 20180419
  Transmission Date: 20180711
  Serious: Yes (Hospitalization, Other)
  Sender: FDA-Public Use
  Company Number: CA-ABBVIE-18K-028-2284399-00

PATIENT
  Sex: Female
  Weight: 34 kg

DRUGS (2)
  1. METHOTREXATE. [Concomitant]
     Active Substance: METHOTREXATE
     Indication: PRODUCT USED FOR UNKNOWN INDICATION
  2. HUMIRA [Suspect]
     Active Substance: ADALIMUMAB
     Indication: CROHN^S DISEASE
     Route: 058
     Dates: start: 20171019, end: 20180322

REACTIONS (6)
  - Crohn^s disease [Recovering/Resolving]
  - Anaemia [Unknown]
  - Faeces soft [Unknown]
  - Post procedural complication [Unknown]
  - Urinary tract obstruction [Unknown]
  - Defaecation disorder [Unknown]

NARRATIVE: CASE EVENT DATE: 2017
